FAERS Safety Report 5012624-1 (Version None)
Quarter: 2006Q2

REPORT INFORMATION
  Report Type: 
  Country: None (occurrence: None)
  Receive Date: 20060411
  Receipt Date: 20060125
  Transmission Date: 20061013
  Serious: No
  Sender: FDA-Public Use
  Company Number: 2006S1000042

PATIENT
  Sex: Female
  Weight: 49 kg

DRUGS (2)
  1. CUBICIN [Suspect]
     Indication: OSTEOMYELITIS
     Dosage: 200 MG;Q24H;IV
     Route: 042
  2. LEVAQUIN [Concomitant]

REACTIONS (1)
  - WEIGHT DECREASED [None]
